FAERS Safety Report 25946946 (Version 1)
Quarter: 2025Q4

REPORT INFORMATION
  Report Type: Spontaneous
  Country: CN (occurrence: CN)
  Receive Date: 20251022
  Receipt Date: 20251022
  Transmission Date: 20260118
  Serious: Yes (Other)
  Sender: GE HEALTHCARE
  Company Number: None

PATIENT
  Age: 85 Year
  Sex: Male
  Weight: 67 kg

DRUGS (5)
  1. VISIPAQUE [Suspect]
     Active Substance: IODIXANOL
     Indication: Imaging procedure
     Dosage: 100 ML, TOTAL
     Route: 042
     Dates: start: 20250923
  2. VISIPAQUE [Suspect]
     Active Substance: IODIXANOL
     Indication: Cardiac pacemaker insertion
  3. CEFAZOLIN SODIUM [Concomitant]
     Active Substance: CEFAZOLIN SODIUM
     Indication: Cardiac pacemaker insertion
     Dosage: 1 GM, BID
     Route: 041
     Dates: start: 20250923, end: 20250924
  4. SODIUM CHLORIDE [Concomitant]
     Active Substance: SODIUM CHLORIDE
     Indication: Vehicle solution use
     Dosage: 100 ML, BID
     Route: 041
     Dates: start: 20250923, end: 20250924
  5. LIDOCAINE HYDROCHLORIDE [Concomitant]
     Active Substance: LIDOCAINE HYDROCHLORIDE
     Indication: Cardiac pacemaker insertion
     Dosage: 0.5 GM, TOTAL
     Route: 041
     Dates: start: 20250923, end: 20250923

REACTIONS (1)
  - Delirium [Recovering/Resolving]

NARRATIVE: CASE EVENT DATE: 20250924
